FAERS Safety Report 4288775-6 (Version None)
Quarter: 2004Q1

REPORT INFORMATION
  Report Type: 
  Country: None (occurrence: None)
  Receive Date: 20040128
  Receipt Date: 20040112
  Transmission Date: 20041129
  Serious: Yes (Hospitalization)
  Sender: FDA-Public Use
  Company Number: WSDF_00372

PATIENT
  Sex: Female

DRUGS (1)
  1. WINRHO SDF [Suspect]
     Indication: RHESUS HAEMOLYTIC DISEASE OF NEWBORN
     Dates: start: 20031213, end: 20031213

REACTIONS (9)
  - BACTERIAL CULTURE POSITIVE [None]
  - COLD SWEAT [None]
  - DIARRHOEA [None]
  - DIZZINESS [None]
  - HYPERPYREXIA [None]
  - POSTPARTUM DISORDER [None]
  - RASH [None]
  - TOXIC SHOCK SYNDROME [None]
  - VOMITING [None]
